FAERS Safety Report 15597724 (Version 3)
Quarter: 2019Q3

REPORT INFORMATION
  Report Type: Spontaneous
  Country: CA (occurrence: CA)
  Receive Date: 20181108
  Receipt Date: 20190927
  Transmission Date: 20191004
  Serious: Yes (Life-Threatening, Hospitalization, Other)
  Sender: FDA-Public Use
  Company Number: CA-GLAXOSMITHKLINE-CA2018GSK202931

PATIENT
  Age: 12 Day
  Sex: Male
  Weight: 3 kg

DRUGS (31)
  1. LAMOTRIGINE. [Suspect]
     Active Substance: LAMOTRIGINE
     Indication: PRODUCT USED FOR UNKNOWN INDICATION
     Dosage: 250 MG, QD, 1 EVERY 1 DAY (S)
     Route: 063
  2. ABILIFY [Suspect]
     Active Substance: ARIPIPRAZOLE
     Dosage: UNK
     Route: 064
  3. ABILIFY [Suspect]
     Active Substance: ARIPIPRAZOLE
     Dosage: UNK
     Route: 064
  4. LAMOTRIGINE. [Suspect]
     Active Substance: LAMOTRIGINE
     Indication: FOETAL EXPOSURE DURING PREGNANCY
  5. LEVOTHYROXINE. [Suspect]
     Active Substance: LEVOTHYROXINE
     Indication: MATERNAL EXPOSURE DURING BREAST FEEDING
     Dosage: UNK
     Route: 064
  6. ABILIFY [Suspect]
     Active Substance: ARIPIPRAZOLE
     Indication: MATERNAL EXPOSURE DURING BREAST FEEDING
     Dosage: UNK
     Route: 064
  7. ACETAMINOPHEN AND CODEINE [Suspect]
     Active Substance: ACETAMINOPHEN\CODEINE PHOSPHATE
     Indication: PRODUCT USED FOR UNKNOWN INDICATION
     Dosage: UNK
     Route: 063
  8. ARIPIPRAZOLE. [Suspect]
     Active Substance: ARIPIPRAZOLE
     Indication: MATERNAL EXPOSURE DURING BREAST FEEDING
     Dosage: 15 MG, QD
     Route: 064
  9. ARIPIPRAZOLE. [Suspect]
     Active Substance: ARIPIPRAZOLE
     Indication: FOETAL EXPOSURE DURING PREGNANCY
  10. DOCUSATE [Suspect]
     Active Substance: DOCUSATE
     Indication: MATERNAL EXPOSURE DURING BREAST FEEDING
     Dosage: UNK
     Route: 064
  11. LEVOTHYROXINE. [Suspect]
     Active Substance: LEVOTHYROXINE
     Indication: PRODUCT USED FOR UNKNOWN INDICATION
     Dosage: 50 MG, QD
     Route: 063
  12. LEVOTHYROXINE. [Suspect]
     Active Substance: LEVOTHYROXINE
     Indication: FOETAL EXPOSURE DURING PREGNANCY
     Dosage: 50.0 UG, UNK, 1 EVERY 1 DAY (S)
     Route: 064
  13. ABILIFY [Suspect]
     Active Substance: ARIPIPRAZOLE
     Dosage: 15 MG, UNK, 1 EVERY 1 DAY(S)
     Route: 063
  14. ACETAMINOPHEN AND CODEINE [Suspect]
     Active Substance: ACETAMINOPHEN\CODEINE PHOSPHATE
     Indication: MATERNAL EXPOSURE DURING BREAST FEEDING
     Dosage: UNK
     Route: 064
  15. DOCUSATE [Suspect]
     Active Substance: DOCUSATE
     Indication: PRODUCT USED FOR UNKNOWN INDICATION
     Dosage: UNK
     Route: 063
  16. LAMOTRIGINE. [Suspect]
     Active Substance: LAMOTRIGINE
     Indication: MATERNAL EXPOSURE DURING BREAST FEEDING
     Dosage: 250 MG, QD, 1 EVERY 1 DAY (S)
     Route: 064
  17. FOLIC ACID. [Suspect]
     Active Substance: FOLIC ACID
     Indication: FOETAL EXPOSURE DURING PREGNANCY
     Dosage: UNK
     Route: 063
  18. FOLIC ACID. [Suspect]
     Active Substance: FOLIC ACID
     Dosage: UNK
     Route: 064
  19. ABILIFY [Suspect]
     Active Substance: ARIPIPRAZOLE
     Indication: FOETAL EXPOSURE DURING PREGNANCY
     Dosage: UNK
     Route: 064
  20. ABILIFY [Suspect]
     Active Substance: ARIPIPRAZOLE
     Dosage: UNK
     Route: 064
  21. NAPROXEN. [Suspect]
     Active Substance: NAPROXEN
     Indication: MATERNAL EXPOSURE DURING BREAST FEEDING
     Dosage: UNK
     Route: 064
  22. NAPROXEN. [Suspect]
     Active Substance: NAPROXEN
     Indication: FOETAL EXPOSURE DURING PREGNANCY
  23. NAPROXEN. [Suspect]
     Active Substance: NAPROXEN
     Indication: PRODUCT USED FOR UNKNOWN INDICATION
     Dosage: UNK
     Route: 063
  24. DOCUSATE [Suspect]
     Active Substance: DOCUSATE
     Indication: FOETAL EXPOSURE DURING PREGNANCY
     Dosage: UNK
     Route: 063
  25. SERTRALINE [Suspect]
     Active Substance: SERTRALINE HYDROCHLORIDE
     Indication: FOETAL EXPOSURE DURING PREGNANCY
     Dosage: UNK
     Route: 064
  26. ARIPIPRAZOLE. [Suspect]
     Active Substance: ARIPIPRAZOLE
     Indication: PRODUCT USED FOR UNKNOWN INDICATION
     Dosage: 15 MG, QD
     Route: 063
  27. ACETAMINOPHEN AND CODEINE [Suspect]
     Active Substance: ACETAMINOPHEN\CODEINE PHOSPHATE
     Indication: FOETAL EXPOSURE DURING PREGNANCY
  28. SERTRALINE [Suspect]
     Active Substance: SERTRALINE HYDROCHLORIDE
     Indication: PRODUCT USED FOR UNKNOWN INDICATION
     Dosage: 100 MG, QD, 1 EVERY 1 DAY (S)
     Route: 063
  29. SERTRALINE [Suspect]
     Active Substance: SERTRALINE HYDROCHLORIDE
     Indication: MATERNAL EXPOSURE DURING BREAST FEEDING
     Dosage: 100 MG, QD, 1 EVERY 1 DAY (S)
     Route: 064
  30. SERTRALINE [Suspect]
     Active Substance: SERTRALINE HYDROCHLORIDE
     Dosage: UNK
     Route: 063
  31. ABILIFY [Suspect]
     Active Substance: ARIPIPRAZOLE
     Indication: PRODUCT USED FOR UNKNOWN INDICATION
     Dosage: 15 MG, UNK, 1 EVERY 1 DAY (S)
     Route: 064

REACTIONS (31)
  - Acidosis [Recovered/Resolved]
  - Skin discolouration [Recovered/Resolved]
  - Acute kidney injury [Recovered/Resolved]
  - Necrosis [Recovered/Resolved]
  - Rhabdomyolysis [Recovered/Resolved]
  - Dehydration [Recovered/Resolved]
  - Mucosal disorder [Unknown]
  - Hypernatraemia [Recovered/Resolved]
  - Weight decrease neonatal [Recovered/Resolved]
  - Hypovolaemic shock [Recovered/Resolved]
  - Partial seizures [Recovered/Resolved]
  - Livedo reticularis [Recovered/Resolved]
  - Moaning [Recovered/Resolved]
  - Gangrene neonatal [Recovered/Resolved]
  - Hyponatraemia [Recovered/Resolved]
  - Petechiae [Recovered/Resolved]
  - Weight decreased [Recovered/Resolved]
  - Alanine aminotransferase increased [Recovered/Resolved]
  - Blood glucose increased [Recovered/Resolved]
  - Maternal exposure during breast feeding [Recovered/Resolved]
  - Disseminated intravascular coagulation [Recovered/Resolved]
  - Gangrene [Recovered/Resolved]
  - Exposure via breast milk [Recovered/Resolved]
  - Hyporesponsive to stimuli [Recovered/Resolved]
  - Somnolence [Recovered/Resolved]
  - Pallor [Recovered/Resolved]
  - Foetal exposure during pregnancy [Recovered/Resolved]
  - Irritability [Recovered/Resolved]
  - Peripheral artery thrombosis [Recovered/Resolved]
  - Skin turgor decreased [Recovered/Resolved]
  - Hypokinesia [Unknown]
